FAERS Safety Report 9503329 (Version 1)
Quarter: 2013Q1

REPORT INFORMATION
  Report Type: Spontaneous
  Country: US (occurrence: None)
  Receive Date: 20130225
  Receipt Date: 20130225
  Transmission Date: 20140127
  Serious: Yes (Other)
  Sender: FDA-Public Use
  Company Number: 369652

PATIENT
  Sex: Female

DRUGS (1)
  1. VICTOZA [Suspect]
     Dosage: , SUBCUTANEOUS
     Route: 058

REACTIONS (1)
  - Pancreatitis [None]
